FAERS Safety Report 24787961 (Version 1)
Quarter: 2024Q4

REPORT INFORMATION
  Report Type: Spontaneous
  Country: CH (occurrence: CH)
  Receive Date: 20241230
  Receipt Date: 20241230
  Transmission Date: 20250115
  Serious: Yes (Hospitalization, Other)
  Sender: AUCTA PHARMACEUTICALS
  Company Number: CH-AUCTA-000018

PATIENT
  Age: 77 Year
  Sex: Male

DRUGS (2)
  1. OXCARBAZEPINE [Suspect]
     Active Substance: OXCARBAZEPINE
     Indication: Trigeminal neuralgia
  2. CANDESARTAN [Concomitant]
     Active Substance: CANDESARTAN
     Indication: Hypertension

REACTIONS (3)
  - Polyserositis [Recovered/Resolved]
  - Systemic inflammatory response syndrome [Recovered/Resolved]
  - Cholestatic liver injury [Recovered/Resolved]
